FAERS Safety Report 5069909-2 (Version None)
Quarter: 2006Q3

REPORT INFORMATION
  Report Type: 
  Country: None (occurrence: None)
  Receive Date: 20060721
  Receipt Date: 20060707
  Transmission Date: 20061208
  Serious: Yes (Hospitalization)
  Sender: FDA-Public Use
  Company Number: WSDF_00551

PATIENT
  Age: 28 Year
  Sex: Female

DRUGS (3)
  1. WINRHO SDF [Suspect]
     Indication: FOETAL-MATERNAL HAEMORRHAGE
     Dosage: 900 MCG DAILY IV
     Route: 042
     Dates: start: 20060517, end: 20060517
  2. WINRHO SDF [Suspect]
     Indication: FOETAL-MATERNAL HAEMORRHAGE
     Dosage: 1000 MCG DAILY IV
     Route: 042
     Dates: start: 20060517, end: 20060517
  3. WINRHO [Suspect]
     Indication: FOETAL-MATERNAL HAEMORRHAGE
     Dosage: 1000 MCG DAILY IV
     Route: 042
     Dates: start: 20060517, end: 20060517

REACTIONS (27)
  - ANGIONEUROTIC OEDEMA [None]
  - ANXIETY [None]
  - ASTHENIA [None]
  - BLOOD BILIRUBIN INCREASED [None]
  - BLOOD LACTATE DEHYDROGENASE INCREASED [None]
  - BRONCHOSPASM [None]
  - CHILLS [None]
  - COOMBS DIRECT TEST POSITIVE [None]
  - CYANOSIS [None]
  - DIZZINESS [None]
  - DYSPNOEA [None]
  - HAEMOGLOBIN DECREASED [None]
  - HAEMOLYSIS [None]
  - HYPERSENSITIVITY [None]
  - HYPERTENSION [None]
  - INFUSION RELATED REACTION [None]
  - INJECTION SITE PAIN [None]
  - MUSCLE SPASMS [None]
  - MUSCULOSKELETAL STIFFNESS [None]
  - OEDEMA PERIPHERAL [None]
  - OXYGEN SATURATION DECREASED [None]
  - PLEURAL EFFUSION [None]
  - PULMONARY OEDEMA [None]
  - PYREXIA [None]
  - RESPIRATORY DISTRESS [None]
  - TACHYCARDIA [None]
  - TACHYPNOEA [None]
